FAERS Safety Report 5945829-3 (Version None)
Quarter: 2008Q4

REPORT INFORMATION
  Report Type: 
  Country: None (occurrence: None)
  Receive Date: 20081108
  Receipt Date: 20081027
  Transmission Date: 20090506
  Serious: Yes (Hospitalization)
  Sender: FDA-Public Use
  Company Number: GB-BAUSCH-2008BL004572

PATIENT
  Age: 48 Year
  Sex: Male
  Weight: 70 kg

DRUGS (7)
  1. PREDNISOLONE [Suspect]
     Indication: HEPATITIS ALCOHOLIC
     Route: 048
     Dates: start: 20080625
  2. CALCICHEW-D3 [Concomitant]
     Indication: CIRRHOSIS ALCOHOLIC
  3. DOSULEPIN [Concomitant]
     Indication: DRUG USE FOR UNKNOWN INDICATION
  4. LACTULOSE [Concomitant]
     Indication: ENCEPHALOPATHY
  5. LANSOPRAZOLE [Concomitant]
     Indication: GASTRITIS
  6. THIAMINE HCL [Concomitant]
     Indication: DRUG USE FOR UNKNOWN INDICATION
  7. VITAMIN B COMPLEX CAP [Concomitant]
     Indication: VITAMIN SUPPLEMENTATION

REACTIONS (1)
  - HYPERGLYCAEMIA [None]
